FAERS Safety Report 5364165-X (Version None)
Quarter: 2007Q2

REPORT INFORMATION
  Report Type: 
  Country: None (occurrence: None)
  Receive Date: 20070530
  Receipt Date: 20070109
  Transmission Date: 20071010
  Serious: No
  Sender: FDA-Public Use
  Company Number: 2007PV028138

PATIENT
  Age: 75 Year
  Sex: Female

DRUGS (5)
  1. BYETTA [Suspect]
     Indication: DIABETES MELLITUS NON-INSULIN-DEPENDENT
     Dosage: 10 MCG;BID;SC ; 5 MCG;BID;SC
     Route: 058
     Dates: start: 20060901, end: 20061201
  2. BYETTA [Suspect]
     Indication: DIABETES MELLITUS NON-INSULIN-DEPENDENT
     Dosage: 10 MCG;BID;SC ; 5 MCG;BID;SC
     Route: 058
     Dates: start: 20061201
  3. AVANDIA [Suspect]
     Indication: DIABETES MELLITUS
     Dosage: 4 MG;BID;PO
     Route: 048
     Dates: start: 20061020
  4. GLYBURIDE [Concomitant]
  5. DIOVAN HCT [Concomitant]

REACTIONS (5)
  - ANOREXIA [None]
  - FLUID RETENTION [None]
  - HYPOGEUSIA [None]
  - INJECTION SITE BRUISING [None]
  - WEIGHT DECREASED [None]
